FAERS Safety Report 7340959-6 (Version None)
Quarter: 2011Q1

REPORT INFORMATION
  Report Type: 
  Country: None (occurrence: None)
  Receive Date: 20110309
  Receipt Date: 20101217
  Transmission Date: 20110831
  Serious: No
  Sender: FDA-Public Use
  Company Number: US-ABBOTT-10P-163-0692976-00

PATIENT
  Sex: Female

DRUGS (3)
  1. UNKNOWN HORMONE [Concomitant]
     Indication: PRODUCT USED FOR UNKNOWN INDICATION
     Dates: start: 20101001
  2. LUPRON DEPOT [Suspect]
     Indication: ENDOMETRIOSIS
     Dates: start: 20101001
  3. LUPRON DEPOT [Suspect]
     Indication: UTERINE LEIOMYOMA

REACTIONS (3)
  - MENSTRUAL DISORDER [None]
  - DRUG EFFECT DELAYED [None]
  - MENORRHAGIA [None]
